FAERS Safety Report 11840039 (Version 1)
Quarter: 2015Q4

REPORT INFORMATION
  Report Type: Spontaneous
  Country: US (occurrence: None)
  Receive Date: 20151215
  Receipt Date: 20151215
  Transmission Date: 20160305
  Serious: Yes (Other)
  Sender: FDA-Public Use
  Company Number: None

PATIENT
  Age: 30 Year
  Sex: Female

DRUGS (3)
  1. LUPRON DEPOT [Suspect]
     Active Substance: LEUPROLIDE ACETATE
     Indication: IMMUNODEFICIENCY
     Dosage: 3.75 MG, QMONTH, IM
     Route: 030
  2. LUPRON DEPOT [Suspect]
     Active Substance: LEUPROLIDE ACETATE
     Indication: PELVIC PAIN
     Dosage: 3.75 MG, QMONTH, IM
     Route: 030
  3. LUPRON DEPOT [Suspect]
     Active Substance: LEUPROLIDE ACETATE
     Indication: PERINEAL PAIN
     Dosage: 3.75 MG, QMONTH, IM
     Route: 030

REACTIONS (5)
  - Drug ineffective [None]
  - Migraine [None]
  - Product substitution issue [None]
  - Back pain [None]
  - Haemorrhage [None]

NARRATIVE: CASE EVENT DATE: 201512
